FAERS Safety Report 7854338-6 (Version None)
Quarter: 2011Q4

REPORT INFORMATION
  Report Type: 
  Country: None (occurrence: None)
  Receive Date: 20111026
  Receipt Date: 20111017
  Transmission Date: 20120403
  Serious: Yes (Other)
  Sender: FDA-Public Use
  Company Number: US-ASTRAZENECA-2010SE60975

PATIENT
  Age: 41 Year
  Sex: Male

DRUGS (2)
  1. TWENTY FIVE DIFFERENT MEDICATIONS [Concomitant]
  2. NEXIUM [Suspect]
     Route: 048

REACTIONS (5)
  - ANEURYSM [None]
  - CEREBROVASCULAR ACCIDENT [None]
  - ABDOMINAL DISCOMFORT [None]
  - CEREBRAL FUNGAL INFECTION [None]
  - MALAISE [None]
